FAERS Safety Report 11499911 (Version 3)
Quarter: 2020Q2

REPORT INFORMATION
  Report Type: Spontaneous
  Country: US (occurrence: US)
  Receive Date: 20150914
  Receipt Date: 20200521
  Transmission Date: 20200713
  Serious: No
  Sender: FDA-Public Use
  Company Number: US-TEVA-592568USA

PATIENT
  Sex: Male
  Weight: 68.1 kg

DRUGS (1)
  1. CLARAVIS [Suspect]
     Active Substance: ISOTRETINOIN
     Indication: ACNE CYSTIC
     Route: 048
     Dates: start: 2015

REACTIONS (6)
  - Hyperhidrosis [Unknown]
  - Temperature intolerance [Recovered/Resolved]
  - Heat exhaustion [Unknown]
  - Presyncope [Unknown]
  - Dizziness [Unknown]
  - Head injury [Unknown]
